FAERS Safety Report 15249187 (Version 1)
Quarter: 2018Q3

REPORT INFORMATION
  Report Type: Spontaneous
  Country: US (occurrence: US)
  Receive Date: 20180807
  Receipt Date: 20180807
  Transmission Date: 20181010
  Serious: Yes (Disabling)
  Sender: FDA-Public Use
  Company Number: US-JNJFOC-20180800079

PATIENT
  Age: 90 Year
  Sex: Female

DRUGS (1)
  1. XARELTO [Suspect]
     Active Substance: RIVAROXABAN
     Indication: THROMBOSIS
     Route: 048
     Dates: end: 20180731

REACTIONS (4)
  - Bedridden [Recovering/Resolving]
  - Contusion [Unknown]
  - Axillary mass [Unknown]
  - Mass [Unknown]

NARRATIVE: CASE EVENT DATE: 201807
